FAERS Safety Report 4586631-7 (Version None)
Quarter: 2005Q1

REPORT INFORMATION
  Report Type: 
  Country: None (occurrence: None)
  Receive Date: 20050218
  Receipt Date: 20040806
  Transmission Date: 20050727
  Serious: Yes (Other)
  Sender: FDA-Public Use
  Company Number: US-BRISTOL-MYERS SQUIBB COMPANY-12663621

PATIENT
  Age: 39 Year
  Sex: Male
  Weight: 102 kg

DRUGS (6)
  1. TAXOL [Suspect]
     Indication: OESOPHAGEAL CANCER METASTATIC
     Dosage: THERAPY COMMENCED: 25-JUL-2000 MIXED IN 500C NSS
     Route: 042
     Dates: start: 20040113, end: 20040113
  2. PEPCID [Concomitant]
     Indication: PREMEDICATION
     Route: 042
  3. DECADRON [Concomitant]
     Indication: PREMEDICATION
     Route: 042
  4. KYTRIL [Concomitant]
     Indication: PREMEDICATION
  5. DIPHENHYDRAMINE HCL [Concomitant]
     Indication: PREMEDICATION
     Route: 042
  6. MULTIVITAMIN [Concomitant]

REACTIONS (3)
  - ALOPECIA [None]
  - HEPATIC FIBROSIS [None]
  - PAIN IN EXTREMITY [None]
